FAERS Safety Report 5991094-0 (Version None)
Quarter: 2008Q4

REPORT INFORMATION
  Report Type: 
  Country: None (occurrence: None)
  Receive Date: 20081211
  Receipt Date: 20080917
  Transmission Date: 20090506
  Serious: Yes (Other)
  Sender: FDA-Public Use
  Company Number: US-PFIZER INC-2008074597

PATIENT
  Sex: Female
  Weight: 64 kg

DRUGS (6)
  1. LYRICA [Suspect]
     Dates: start: 20080313, end: 20080823
  2. ELAVIL [Concomitant]
  3. MONTELUKAST SODIUM [Concomitant]
  4. VERAMYST [Concomitant]
     Route: 045
  5. MULTI-VITAMINS [Concomitant]
  6. RELPAX [Concomitant]
     Indication: MIGRAINE

REACTIONS (24)
  - ABDOMINAL DISTENSION [None]
  - AGEUSIA [None]
  - AMENORRHOEA [None]
  - ANOREXIA [None]
  - ANXIETY [None]
  - BLADDER DISORDER [None]
  - BLADDER PAIN [None]
  - BRUXISM [None]
  - CHILLS [None]
  - DIARRHOEA [None]
  - HEADACHE [None]
  - HYPOAESTHESIA [None]
  - INSOMNIA [None]
  - MENSTRUATION IRREGULAR [None]
  - MICTURITION URGENCY [None]
  - MUSCLE SPASMS [None]
  - MUSCLE TWITCHING [None]
  - NAUSEA [None]
  - NEPHROLITHIASIS [None]
  - POLLAKIURIA [None]
  - URINARY INCONTINENCE [None]
  - URINARY TRACT INFECTION [None]
  - WEIGHT DECREASED [None]
  - WEIGHT INCREASED [None]
